FAERS Safety Report 6485733-8 (Version None)
Quarter: 2009Q4

REPORT INFORMATION
  Report Type: 
  Country: None (occurrence: None)
  Receive Date: 20091209
  Receipt Date: 20090708
  Transmission Date: 20100525
  Serious: No
  Sender: FDA-Public Use
  Company Number: US-AMGEN-KDL354885

PATIENT
  Sex: Male

DRUGS (6)
  1. ENBREL [Suspect]
     Indication: PSORIASIS
  2. ADVAIR DISKUS 100/50 [Concomitant]
  3. MICARDIS [Concomitant]
  4. XOPENEX [Concomitant]
  5. FLONASE [Concomitant]
  6. OXYCONTIN [Concomitant]

REACTIONS (1)
  - PSORIASIS [None]
